FAERS Safety Report 5299381-9 (Version None)
Quarter: 2007Q2

REPORT INFORMATION
  Report Type: 
  Country: None (occurrence: None)
  Receive Date: 20070411
  Receipt Date: 20070411
  Transmission Date: 20071010
  Serious: Yes (Other)
  Sender: FDA-Public Use
  Company Number: None

PATIENT
  Age: 17 Year
  Sex: Female
  Weight: 49.8957 kg

DRUGS (1)
  1. METHOTREXATE [Suspect]
     Dosage: 0.6ML SQ EVERY WEEK
     Route: 058
     Dates: start: 20070315

REACTIONS (5)
  - BODY TEMPERATURE INCREASED [None]
  - MALAISE [None]
  - NAUSEA [None]
  - RASH [None]
  - VOMITING [None]
